FAERS Safety Report 13415844 (Version 1)
Quarter: 2017Q2

REPORT INFORMATION
  Report Type: Report from Study
  Country: DE (occurrence: DE)
  Receive Date: 20170407
  Receipt Date: 20170407
  Transmission Date: 20170830
  Serious: Yes (Death, Hospitalization, Other)
  Sender: FDA-Public Use
  Company Number: DE-BAYER-2016-023849

PATIENT
  Age: 78 Year
  Sex: Female
  Weight: 69 kg

DRUGS (8)
  1. OPSUMIT [Concomitant]
     Active Substance: MACITENTAN
     Dosage: DAILY DOSE 30 MG
     Dates: start: 201412
  2. OXYGEN. [Concomitant]
     Active Substance: OXYGEN
     Dosage: DAILY DOSE 3.5 L
     Dates: start: 201008
  3. ADEMPAS [Suspect]
     Active Substance: RIOCIGUAT
     Indication: PULMONARY HYPERTENSION
     Dosage: 1 MG, TID
     Route: 048
     Dates: start: 20140513
  4. ADEMPAS [Suspect]
     Active Substance: RIOCIGUAT
     Indication: PULMONARY HYPERTENSION
     Dosage: 2 MG, TID
     Route: 048
     Dates: start: 201501, end: 20160607
  5. ILOPROST. [Concomitant]
     Active Substance: ILOPROST
     Dosage: DAILY DOSE 1 MG
     Dates: start: 201301, end: 201303
  6. TRACLEER [Concomitant]
     Active Substance: BOSENTAN
     Dosage: 250 MG, 30% LOWER LEVEL OF RIOCIGUAT DUE TO BOSENTAN
     Dates: start: 201008, end: 201412
  7. SILDENAFIL. [Concomitant]
     Active Substance: SILDENAFIL
     Dosage: REPLACED BY RIOCIGUAT
     Dates: start: 201110, end: 201405
  8. PHENPROCOUMON [Concomitant]
     Active Substance: PHENPROCOUMON
     Dosage: UNK
     Dates: start: 201003

REACTIONS (5)
  - Death [Fatal]
  - Haematemesis [Recovered/Resolved]
  - Oedema [Recovered/Resolved]
  - Dyspnoea [Recovered/Resolved]
  - Atrial tachycardia [Recovered/Resolved]

NARRATIVE: CASE EVENT DATE: 20150313
